FAERS Safety Report 9053410 (Version 1)
Quarter: 2013Q1

REPORT INFORMATION
  Report Type: Spontaneous
  Country: FR (occurrence: None)
  Receive Date: 20130111
  Receipt Date: 20130111
  Transmission Date: 20140127
  Serious: Yes (Congenital Anomaly)
  Sender: FDA-Public Use
  Company Number: 219990

PATIENT
  Sex: Female
  Weight: 3.27 kg

DRUGS (2)
  1. DAIVONEX (CALCIPOTRIOL) [Suspect]
     Indication: PRODUCT USED FOR UNKNOWN INDICATION
     Route: 064
  2. FLIXOVATE (FLUTICASONE) [Concomitant]

REACTIONS (3)
  - Limb reduction defect [None]
  - Brachydactyly [None]
  - Maternal drugs affecting foetus [None]
